FAERS Safety Report 8580933-5 (Version None)
Quarter: 2012Q3

REPORT INFORMATION
  Report Type: 
  Country: None (occurrence: None)
  Receive Date: 20120726
  Receipt Date: 20120713
  Transmission Date: 20120928
  Serious: Yes (Disabling, Other)
  Sender: FDA-Public Use
  Company Number: 2012AP002117

PATIENT
  Age: 68 Year
  Sex: Female

DRUGS (7)
  1. CANDESARTAN CILEXETIL [Suspect]
     Indication: HYPERTENSION
     Dosage: 4 MG;PO;QID
     Route: 048
     Dates: start: 20060123, end: 20100101
  2. BENDROFLUMETHIAZIDE (BENDROFLUMETHIAZIDE) [Concomitant]
  3. ASPIRIN [Concomitant]
  4. LEVOTHYROXINE SODIUM [Concomitant]
  5. PERINDOPRIL ERBUMINE [Suspect]
     Indication: HYPERTENSION
     Dosage: 8 MG;QD
     Dates: start: 20050718, end: 20100101
  6. URSODIOL [Concomitant]
  7. EZETIMIBE [Suspect]
     Indication: CARDIOVASCULAR EVENT PROPHYLAXIS
     Dosage: 10 MG;TAB;PO;QID
     Route: 048
     Dates: start: 20080130, end: 20100101

REACTIONS (12)
  - SPEECH DISORDER [None]
  - DYSPHAGIA [None]
  - EYE PRURITUS [None]
  - LIP SWELLING [None]
  - CHEILITIS [None]
  - DRY EYE [None]
  - SWOLLEN TONGUE [None]
  - BILIARY CIRRHOSIS PRIMARY [None]
  - AGEUSIA [None]
  - BULBAR PALSY [None]
  - GLOSSODYNIA [None]
  - ANOSMIA [None]
